FAERS Safety Report 6255498-3 (Version None)
Quarter: 2009Q2

REPORT INFORMATION
  Report Type: 
  Country: None (occurrence: None)
  Receive Date: 20090630
  Receipt Date: 20090615
  Transmission Date: 20091009
  Serious: Yes (Other)
  Sender: FDA-Public Use
  Company Number: 8048037

PATIENT
  Age: 53 Year
  Sex: Female
  Weight: 75 kg

DRUGS (1)
  1. CERTOLIZUMAB PEGOL [Suspect]
     Indication: RHEUMATOID ARTHRITIS
     Dosage: 200 MG 1/2W SC
     Route: 058
     Dates: start: 20051205, end: 20090615

REACTIONS (7)
  - BRONCHITIS [None]
  - ERYTHEMA [None]
  - FURUNCLE [None]
  - INFECTION [None]
  - LIMB INJURY [None]
  - OEDEMA PERIPHERAL [None]
  - ORAL HERPES [None]
